FAERS Safety Report 7554674-7 (Version None)
Quarter: 2011Q2

REPORT INFORMATION
  Report Type: 
  Country: None (occurrence: None)
  Receive Date: 20110617
  Receipt Date: 20110603
  Transmission Date: 20111010
  Serious: Yes (Hospitalization)
  Sender: FDA-Public Use
  Company Number: NL-JNJFOC-20110603626

PATIENT
  Sex: Male
  Weight: 52.7 kg

DRUGS (8)
  1. FOLIUMZUUR [Concomitant]
  2. CALCICHEW [Concomitant]
  3. ONDANSETRON [Concomitant]
  4. REMICADE [Suspect]
     Indication: CROHN'S DISEASE
     Route: 042
     Dates: start: 20110209
  5. PANTOPRAZOLE [Concomitant]
  6. REMICADE [Suspect]
     Route: 042
     Dates: start: 20110419
  7. METHOTREXATE [Suspect]
     Indication: CROHN'S DISEASE
  8. LOPERAMIDE [Concomitant]

REACTIONS (1)
  - CROHN'S DISEASE [None]
